FAERS Safety Report 11206067 (Version 1)
Quarter: 2015Q2

REPORT INFORMATION
  Report Type: Other
  Country: US (occurrence: US)
  Receive Date: 20150622
  Receipt Date: 20150622
  Transmission Date: 20150821
  Serious: Yes (Other)
  Sender: FDA-Public Use
  Company Number: US-ACORDA-ACO_112609_2015

PATIENT
  Age: 60 Year
  Sex: Female

DRUGS (1)
  1. AMPYRA [Suspect]
     Active Substance: DALFAMPRIDINE
     Indication: PRODUCT USED FOR UNKNOWN INDICATION
     Dosage: UNK
     Dates: start: 2011

REACTIONS (3)
  - Lower limb fracture [Unknown]
  - Fall [Unknown]
  - Ankle fracture [Unknown]

NARRATIVE: CASE EVENT DATE: 20150506
